FAERS Safety Report 6427449-X (Version None)
Quarter: 2009Q4

REPORT INFORMATION
  Report Type: 
  Country: None (occurrence: None)
  Receive Date: 20091030
  Receipt Date: 20091016
  Transmission Date: 20100525
  Serious: Yes (Hospitalization)
  Sender: FDA-Public Use
  Company Number: 2009AC000054

PATIENT
  Age: 54 Year
  Sex: Female

DRUGS (29)
  1. DIGOXIN [Suspect]
     Indication: HEART RATE IRREGULAR
     Dosage: 0.125 MG;QD;PO
     Route: 048
  2. INSULIN [Concomitant]
  3. CARDIZEM [Concomitant]
  4. LASIX [Concomitant]
  5. GLUCOPHAGE [Concomitant]
  6. GLYBURIDE [Concomitant]
  7. ATROVENT [Concomitant]
  8. PRILOSEC [Concomitant]
  9. VALIUM [Concomitant]
  10. PAXIL [Concomitant]
  11. AZMACORT [Concomitant]
  12. ALBUTEROL [Concomitant]
  13. INDERAL [Concomitant]
  14. TYLOX [Concomitant]
  15. SEREVENT [Concomitant]
  16. MOTRIN [Concomitant]
  17. COREG [Concomitant]
  18. COUMADIN [Concomitant]
  19. LORTAB [Concomitant]
  20. ASPIRIN [Concomitant]
  21. LISINOPRIL [Concomitant]
  22. MICRO-K [Concomitant]
  23. CARDIZEM [Concomitant]
  24. GLUCOPHAGE [Concomitant]
  25. LASIX [Concomitant]
  26. LANTUS [Concomitant]
  27. XANAX [Concomitant]
  28. NEBULIZER [Concomitant]
  29. DUONEB [Concomitant]

REACTIONS (30)
  - ADVERSE DRUG REACTION [None]
  - ANGINA PECTORIS [None]
  - ANHEDONIA [None]
  - ANXIETY [None]
  - ASTHMA [None]
  - ATRIAL FIBRILLATION [None]
  - ATRIAL FLUTTER [None]
  - BIPOLAR DISORDER [None]
  - BLOOD CHOLESTEROL INCREASED [None]
  - CARDIAC FAILURE CONGESTIVE [None]
  - CARDIOMEGALY [None]
  - CELLULITIS [None]
  - CHRONIC OBSTRUCTIVE PULMONARY DISEASE [None]
  - CORONARY ARTERY DISEASE [None]
  - DEEP VEIN THROMBOSIS [None]
  - DEPRESSION [None]
  - DIABETES MELLITUS [None]
  - DIABETES MELLITUS INADEQUATE CONTROL [None]
  - ECONOMIC PROBLEM [None]
  - GASTROINTESTINAL DISORDER [None]
  - HYPERTENSION [None]
  - INJURY [None]
  - MYOCARDIAL INFARCTION [None]
  - PAIN [None]
  - PALPITATIONS [None]
  - PULMONARY EMBOLISM [None]
  - SCHIZOPHRENIA [None]
  - SOCIAL PROBLEM [None]
  - UTERINE CANCER [None]
  - VENTRICULAR FIBRILLATION [None]
